FAERS Safety Report 5214013-3 (Version None)
Quarter: 2007Q1

REPORT INFORMATION
  Report Type: 
  Country: None (occurrence: None)
  Receive Date: 20070122
  Receipt Date: 20070112
  Transmission Date: 20070707
  Serious: Yes (Death)
  Sender: FDA-Public Use
  Company Number: GB-JNJFOC-20070101186

PATIENT
  Sex: Male

DRUGS (4)
  1. RISPERDAL CONSTA [Suspect]
     Indication: DRUG USE FOR UNKNOWN INDICATION
     Route: 030
  2. VENLAFAXINE HCL [Concomitant]
  3. MIRTAZAPINE [Concomitant]
  4. TRIFLUOPERAZINE HYDROCHLORIDE [Concomitant]

REACTIONS (1)
  - DEATH [None]
